FAERS Safety Report 6919859-9 (Version None)
Quarter: 2010Q3

REPORT INFORMATION
  Report Type: 
  Country: None (occurrence: None)
  Receive Date: 20100811
  Receipt Date: 20100806
  Transmission Date: 20110219
  Serious: Yes (Death, Hospitalization, Other)
  Sender: FDA-Public Use
  Company Number: US-CEPHALON-2010003121

PATIENT
  Sex: Female
  Weight: 81 kg

DRUGS (10)
  1. TREANDA [Suspect]
     Indication: BREAST CANCER
     Route: 042
     Dates: start: 20100503, end: 20100504
  2. ERLOTINIB HYDROCHLORIDE [Suspect]
     Indication: BREAST CANCER
     Route: 048
     Dates: start: 20100507, end: 20100523
  3. GABAPENTIN [Concomitant]
     Dates: start: 20080930
  4. INSULIN LISPRO [Concomitant]
     Dates: start: 20080930
  5. LOPERAMIDE [Concomitant]
     Dates: start: 20100616
  6. OXYCODONE/ACET [Concomitant]
     Dates: start: 20091214
  7. CEPHALEXIN [Concomitant]
     Dates: start: 20100524, end: 20100616
  8. SERTRALINE HYDROCHLORIDE [Concomitant]
     Dates: start: 20081103
  9. VALACYCLOVIR [Concomitant]
     Dates: start: 20090915
  10. INSULIN GLARGINE [Concomitant]
     Dates: start: 20100616

REACTIONS (4)
  - HAEMOGLOBIN DECREASED [None]
  - INFECTION [None]
  - LYMPHOPENIA [None]
  - PYREXIA [None]
